FAERS Safety Report 13171815 (Version 2)
Quarter: 2017Q1

REPORT INFORMATION
  Report Type: Spontaneous
  Country: US (occurrence: US)
  Receive Date: 20170201
  Receipt Date: 20170307
  Transmission Date: 20170428
  Serious: No
  Sender: FDA-Public Use
  Company Number: US-PFIZER INC-2017037206

PATIENT
  Age: 52 Year
  Sex: Female

DRUGS (5)
  1. VITAMIN D [Concomitant]
     Active Substance: CHOLECALCIFEROL
     Dosage: UNK
  2. IBRANCE [Suspect]
     Active Substance: PALBOCICLIB
     Indication: BREAST CANCER METASTATIC
     Dosage: 125 MG, CYCLIC (ONCE DAILY WITH FOOD FOR 21 DAYS, FOLLOWED BY 7 DAYS OFF AS DIRECTED)
     Route: 048
  3. CALCIUM 600 [Concomitant]
     Dosage: UNK
  4. ZOMETA [Concomitant]
     Active Substance: ZOLEDRONIC ACID
     Dosage: UNK
     Route: 042
  5. LETROZOLE. [Concomitant]
     Active Substance: LETROZOLE
     Dosage: UNK

REACTIONS (7)
  - Throat irritation [Unknown]
  - Increased upper airway secretion [Unknown]
  - Fatigue [Unknown]
  - Neoplasm progression [Unknown]
  - Full blood count decreased [Unknown]
  - Cough [Unknown]
  - White blood cell count decreased [Recovered/Resolved]
